FAERS Safety Report 6838647-5 (Version None)
Quarter: 2010Q3

REPORT INFORMATION
  Report Type: 
  Country: None (occurrence: None)
  Receive Date: 20100713
  Receipt Date: 20070618
  Transmission Date: 20110219
  Serious: No
  Sender: FDA-Public Use
  Company Number: US-PFIZER INC-2007050524

PATIENT
  Sex: Female
  Weight: 63.6 kg

DRUGS (6)
  1. CHANTIX [Suspect]
     Indication: SMOKING CESSATION THERAPY
     Dates: start: 20070401
  2. TEGRETOL [Concomitant]
  3. HALDOL [Concomitant]
  4. ESTRATEST [Concomitant]
  5. MOBIC [Concomitant]
  6. ATIVAN [Concomitant]

REACTIONS (1)
  - CONSTIPATION [None]
